FAERS Safety Report 7306092-4 (Version None)
Quarter: 2011Q1

REPORT INFORMATION
  Report Type: 
  Country: None (occurrence: None)
  Receive Date: 20110210
  Receipt Date: 19931019
  Transmission Date: 20110831
  Serious: Yes (Death)
  Sender: FDA-Public Use
  Company Number: DSA_44894_2011

PATIENT
  Sex: Female

DRUGS (3)
  1. DILTIAZEM HCL [Suspect]
     Indication: COMPLETED SUICIDE
     Dosage: 3300 MG, NOT THE PRESCRIBED AMOUNT ORAL
     Route: 048
  2. CODEINE [Suspect]
     Indication: COMPLETED SUICIDE
     Dosage: NOT THE PRESCRIBED AMOUNT
  3. FLUOXETINE [Suspect]
     Dosage: NOT PRESCRIBED AMOUNT

REACTIONS (1)
  - COMPLETED SUICIDE [None]
